FAERS Safety Report 4287943-7 (Version None)
Quarter: 2004Q1

REPORT INFORMATION
  Report Type: 
  Country: None (occurrence: None)
  Receive Date: 20040209
  Receipt Date: 20031104
  Transmission Date: 20041129
  Serious: Yes (Other)
  Sender: FDA-Public Use
  Company Number: US-GLAXOSMITHKLINE-A0432881A

PATIENT
  Sex: Female

DRUGS (2)
  1. PAROXETINE [Suspect]
     Dosage: 75MG PER DAY
     Route: 048
  2. WELLBUTRIN SR [Concomitant]

REACTIONS (1)
  - DELIRIUM [None]
